FAERS Safety Report 20665896 (Version 1)
Quarter: 2022Q2

REPORT INFORMATION
  Report Type: Spontaneous
  Country: US (occurrence: US)
  Receive Date: 20220402
  Receipt Date: 20220402
  Transmission Date: 20220720
  Serious: No
  Sender: FDA-Public Use
  Company Number: US-TEVA-2022-US-2016799

PATIENT
  Sex: Male

DRUGS (1)
  1. PROAIR HFA [Suspect]
     Active Substance: ALBUTEROL SULFATE
     Indication: Asthma
     Dosage: INHALATION - AEROSOL

REACTIONS (4)
  - Device difficult to use [Unknown]
  - Product odour abnormal [Unknown]
  - Product taste abnormal [Unknown]
  - Device delivery system issue [Unknown]
